FAERS Safety Report 9825085 (Version 1)
Quarter: 2014Q1

REPORT INFORMATION
  Report Type: Spontaneous
  Country: US (occurrence: None)
  Receive Date: 20140115
  Receipt Date: 20140115
  Transmission Date: 20141002
  Serious: Yes (Other)
  Sender: FDA-Public Use
  Company Number: None

PATIENT
  Age: 50 Year
  Sex: Female
  Weight: 101 kg

DRUGS (1)
  1. PNEUMOCOCCAL VACCINE [Suspect]
     Indication: IMMUNISATION
     Route: 030
     Dates: start: 20120417, end: 20120417

REACTIONS (3)
  - Erythema [None]
  - Urticaria [None]
  - Feeling hot [None]
